FAERS Safety Report 6168856-2 (Version None)
Quarter: 2009Q2

REPORT INFORMATION
  Report Type: 
  Country: None (occurrence: None)
  Receive Date: 20090424
  Receipt Date: 20090424
  Transmission Date: 20091009
  Serious: Yes (Other)
  Sender: FDA-Public Use
  Company Number: None

PATIENT
  Age: 52 Year
  Sex: Female
  Weight: 115 kg

DRUGS (2)
  1. PEG-INTRON [Suspect]
     Indication: HEPATITIS C
     Dosage: 150MCG/0.5ML WEEKLY SQ
     Route: 058
     Dates: start: 20090310, end: 20090421
  2. RIBAVIRIN [Concomitant]

REACTIONS (2)
  - OPTIC NERVE INFARCTION [None]
  - RETINAL EXUDATES [None]
